FAERS Safety Report 8839604 (Version 1)
Quarter: 2012Q4

REPORT INFORMATION
  Report Type: Spontaneous
  Country: US (occurrence: None)
  Receive Date: 20121011
  Receipt Date: 20121011
  Transmission Date: 20130627
  Serious: Yes (Hospitalization)
  Sender: FDA-Public Use
  Company Number: None

PATIENT
  Age: 3 Year
  Sex: Female
  Weight: 14.3 kg

DRUGS (1)
  1. ONCASPAR [Suspect]
     Indication: ACUTE LYMPHOBLASTIC LEUKEMIA
     Route: 041
     Dates: start: 20121004, end: 20121004

REACTIONS (6)
  - Rash erythematous [None]
  - Swelling face [None]
  - Respiratory distress [None]
  - Oxygen saturation decreased [None]
  - Pulse absent [None]
  - Blood pressure immeasurable [None]
